FAERS Safety Report 20061221 (Version 1)
Quarter: 2021Q4

REPORT INFORMATION
  Report Type: Spontaneous
  Country: DE (occurrence: DE)
  Receive Date: 20211112
  Receipt Date: 20211112
  Transmission Date: 20220303
  Serious: No
  Sender: FDA-Public Use
  Company Number: DE-ALKEM LABORATORIES LIMITED-DE-ALKEM-2021-04638

PATIENT
  Age: 44 Year
  Sex: Female
  Weight: 45 kg

DRUGS (8)
  1. PREGABALIN [Suspect]
     Active Substance: PREGABALIN
     Indication: Product used for unknown indication
     Dosage: 125 MILLIGRAM, QD
     Route: 048
     Dates: start: 201507
  2. APIXABAN [Concomitant]
     Active Substance: APIXABAN
     Indication: Product used for unknown indication
     Dosage: 5 MILLIGRAM, QD
     Route: 048
     Dates: start: 201907
  3. CHOLECALCIFEROL [Concomitant]
     Active Substance: CHOLECALCIFEROL
     Indication: Product used for unknown indication
     Dosage: 1 DOSAGE FORM, MONTHLY
     Route: 048
     Dates: start: 201907
  4. GILENYA [Concomitant]
     Active Substance: FINGOLIMOD HYDROCHLORIDE
     Indication: Product used for unknown indication
     Dosage: 1 DOSAGE FORM, QD
     Route: 048
     Dates: start: 201307
  5. Oxycan [Concomitant]
     Indication: Product used for unknown indication
     Dosage: 30 MILLIGRAM, QD
     Route: 048
     Dates: start: 202101
  6. Oxycodon AL [Concomitant]
     Indication: Product used for unknown indication
     Dosage: 3 DOSAGE FORM, 1 AS NECESSARY
     Route: 048
     Dates: start: 201907
  7. Oxycodon AL [Concomitant]
     Dosage: 3 DOSAGE FORM, 1 AS NECESSARY
     Route: 048
     Dates: start: 201907
  8. BENSERAZIDE\LEVODOPA [Concomitant]
     Active Substance: BENSERAZIDE\LEVODOPA
     Indication: Product used for unknown indication
     Dosage: 3 DOSAGE FORM, QD
     Route: 048
     Dates: start: 201907

REACTIONS (1)
  - Memory impairment [Not Recovered/Not Resolved]

NARRATIVE: CASE EVENT DATE: 20150701
